FAERS Safety Report 9986782 (Version 3)
Quarter: 2014Q2

REPORT INFORMATION
  Report Type: Report from Study
  Country: US (occurrence: US)
  Receive Date: 20140307
  Receipt Date: 20140512
  Transmission Date: 20141212
  Serious: Yes (Other)
  Sender: FDA-Public Use
  Company Number: PHEH2014US004681

PATIENT
  Sex: Female

DRUGS (1)
  1. DIOVAN [Suspect]
     Dosage: 40 MG, QD
     Route: 048

REACTIONS (6)
  - Myocardial infarction [Unknown]
  - Asthma [Unknown]
  - Cardiac failure [Unknown]
  - Lung disorder [Unknown]
  - General physical health deterioration [Unknown]
  - Arthritis [Unknown]
